FAERS Safety Report 22618996 (Version 1)
Quarter: 2023Q2

REPORT INFORMATION
  Report Type: Spontaneous
  Country: US (occurrence: US)
  Receive Date: 20230620
  Receipt Date: 20230620
  Transmission Date: 20230721
  Serious: Yes (Other)
  Sender: FDA-Public Use
  Company Number: US-AUROBINDO-AUR-APL-2023-004013

PATIENT
  Age: 67 Year
  Sex: Male
  Weight: 116 kg

DRUGS (2)
  1. TAMSULOSIN HYDROCHLORIDE [Suspect]
     Active Substance: TAMSULOSIN HYDROCHLORIDE
     Indication: Hypertension
     Dosage: 1 DOSAGE FORM, TWO TIMES A DAY (ONCE IN THE MORNING, ONCE IN THE NIGHT FOR COUPLE OF YEARS)
     Route: 065
     Dates: end: 20230119
  2. TAMSULOSIN HYDROCHLORIDE [Suspect]
     Active Substance: TAMSULOSIN HYDROCHLORIDE
     Dosage: 1 DOSAGE FORM, TWO TIMES A DAY (REDUCED THE PILL FREQUENCY)
     Route: 065
     Dates: start: 20230120

REACTIONS (2)
  - Atrial fibrillation [Unknown]
  - Dizziness [Not Recovered/Not Resolved]
